FAERS Safety Report 9204012 (Version 1)
Quarter: 2013Q1

REPORT INFORMATION
  Report Type: Spontaneous
  Country: US (occurrence: None)
  Receive Date: 20120709
  Receipt Date: 20120709
  Transmission Date: 20140127
  Serious: Yes (Hospitalization)
  Sender: FDA-Public Use
  Company Number: PHHY2011US54129

PATIENT
  Sex: Female

DRUGS (7)
  1. GLEEVEC [Suspect]
     Indication: CHRONIC MYELOID LEUKAEMIA
     Route: 048
     Dates: start: 20090530
  2. SPIRONOLACTONE (SPIRONOLACTONE) [Concomitant]
  3. MECLIZINE (MECLIZINE) [Concomitant]
  4. METOPROLOL (METOPROLOL) [Concomitant]
  5. FLOVENT (FLUTICASONE PROPIONATE) [Concomitant]
  6. LOPRESOR (METOPROLOL TARTRATE) [Concomitant]
  7. ASPIRIN ^BAYER^ (ACETYLSALICYLIC ACID) [Concomitant]

REACTIONS (3)
  - Nausea [None]
  - Dizziness [None]
  - Vertigo [None]
